FAERS Safety Report 5977174-4 (Version None)
Quarter: 2008Q4

REPORT INFORMATION
  Report Type: 
  Country: None (occurrence: None)
  Receive Date: 20081201
  Receipt Date: 20081201
  Transmission Date: 20090506
  Serious: Yes (Disabling, Other)
  Sender: FDA-Public Use
  Company Number: None

PATIENT
  Age: 48 Year
  Sex: Male
  Weight: 88.4514 kg

DRUGS (5)
  1. LEXAPRO [Suspect]
     Indication: ANXIETY
     Dosage: 10 MG DAILY PO
     Route: 048
     Dates: start: 20061204, end: 20080526
  2. CETIRIZINE HCL [Concomitant]
  3. FLUTICASONE PROPIONATE [Concomitant]
  4. LEVOTHYRONXIN [Concomitant]
  5. CLONAZEPAM [Concomitant]

REACTIONS (25)
  - ABNORMAL DREAMS [None]
  - AGITATION [None]
  - ANAL HAEMORRHAGE [None]
  - CHONDROPATHY [None]
  - DEREALISATION [None]
  - DIARRHOEA [None]
  - DYSKINESIA [None]
  - FATIGUE [None]
  - FLAT AFFECT [None]
  - FORMICATION [None]
  - HEADACHE [None]
  - IMPAIRED WORK ABILITY [None]
  - INSOMNIA [None]
  - MUSCLE DISORDER [None]
  - MUSCLE SPASMS [None]
  - MYALGIA [None]
  - NAUSEA [None]
  - NIGHTMARE [None]
  - PALPITATIONS [None]
  - PARAESTHESIA [None]
  - PRURITUS [None]
  - PYREXIA [None]
  - RASH [None]
  - TREMOR [None]
  - VERTIGO [None]
